FAERS Safety Report 20033033 (Version 1)
Quarter: 2021Q4

REPORT INFORMATION
  Report Type: Report from Study
  Country: BR (occurrence: BR)
  Receive Date: 20211104
  Receipt Date: 20211104
  Transmission Date: 20220303
  Serious: Yes (Other)
  Sender: FDA-Public Use
  Company Number: BR-NOVARTISPH-NVSC2021BR169373

PATIENT
  Age: 59 Year
  Sex: Male

DRUGS (3)
  1. TAFINLAR [Suspect]
     Active Substance: DABRAFENIB MESYLATE
     Indication: Malignant melanoma
     Dosage: UNK
     Route: 065
     Dates: start: 202101
  2. MEKINIST [Suspect]
     Active Substance: TRAMETINIB DIMETHYL SULFOXIDE
     Indication: Malignant melanoma
     Dosage: UNK
     Route: 065
     Dates: start: 202101
  3. DIPYRONE [Concomitant]
     Active Substance: DIPYRONE
     Indication: Product used for unknown indication
     Dosage: UNK
     Route: 065

REACTIONS (9)
  - Malignant melanoma [Recovered/Resolved]
  - Lymphadenopathy [Unknown]
  - Decreased immune responsiveness [Recovering/Resolving]
  - Tremor [Recovered/Resolved]
  - Skin depigmentation [Recovering/Resolving]
  - Drug ineffective [Not Recovered/Not Resolved]
  - Anxiety [Unknown]
  - Skin lesion [Unknown]
  - Pyrexia [Recovering/Resolving]
